FAERS Safety Report 6169140-3 (Version None)
Quarter: 2009Q2

REPORT INFORMATION
  Report Type: 
  Country: None (occurrence: None)
  Receive Date: 20090427
  Receipt Date: 20090415
  Transmission Date: 20091009
  Serious: Yes (Congenital Anomaly)
  Sender: FDA-Public Use
  Company Number: GB-ELI_LILLY_AND_COMPANY-GB200808001241

PATIENT
  Sex: Female

DRUGS (1)
  1. FLUOXETINE HCL [Suspect]
     Dosage: 20 MG, DAILY (1/D)
     Route: 064
     Dates: start: 20070401, end: 20070801

REACTIONS (2)
  - DRUG EXPOSURE DURING PREGNANCY [None]
  - POSTERIOR SEGMENT OF EYE ANOMALY CONGENITAL [None]
